FAERS Safety Report 23471911 (Version 1)
Quarter: 2024Q1

REPORT INFORMATION
  Report Type: Spontaneous
  Country: US (occurrence: None)
  Receive Date: 20240202
  Receipt Date: 20240202
  Transmission Date: 20240410
  Serious: Yes (Hospitalization)
  Sender: FDA-Public Use
  Company Number: None

PATIENT
  Age: 77 Year
  Sex: Female
  Weight: 53.1 kg

DRUGS (7)
  1. LISINOPRIL AND HYDROCHLOROTHIAZIDE [Suspect]
     Active Substance: HYDROCHLOROTHIAZIDE\LISINOPRIL
     Indication: Hypertension
     Dosage: FREQUENCY : DAILY;?
     Route: 048
  2. ATENOLOL [Concomitant]
     Active Substance: ATENOLOL
  3. RALOXIFENE [Concomitant]
     Active Substance: RALOXIFENE
  4. ROSUVASTATIN [Concomitant]
     Active Substance: ROSUVASTATIN
  5. IBUPROFEN [Concomitant]
     Active Substance: IBUPROFEN
  6. Calcium Carbonate 600mg [Concomitant]
  7. BACLOFEN [Concomitant]
     Active Substance: BACLOFEN

REACTIONS (2)
  - Swollen tongue [None]
  - Swelling [None]

NARRATIVE: CASE EVENT DATE: 20240201
